FAERS Safety Report 5308999-6 (Version None)
Quarter: 2007Q2

REPORT INFORMATION
  Report Type: 
  Country: None (occurrence: None)
  Receive Date: 20070420
  Receipt Date: 20070410
  Transmission Date: 20071010
  Serious: Yes (Other)
  Sender: FDA-Public Use
  Company Number: 070411-0000378

PATIENT
  Age: 25 Year
  Sex: Male

DRUGS (3)
  1. ELSPAR [Suspect]
     Indication: ACUTE LYMPHOCYTIC LEUKAEMIA
  2. CYTARABINE [Concomitant]
  3. METHOTREXATE [Concomitant]

REACTIONS (2)
  - CONVULSION [None]
  - SUPERIOR SAGITTAL SINUS THROMBOSIS [None]
